FAERS Safety Report 8072837-1 (Version None)
Quarter: 2012Q1

REPORT INFORMATION
  Report Type: 
  Country: None (occurrence: None)
  Receive Date: 20120123
  Receipt Date: 20120109
  Transmission Date: 20120608
  Serious: Yes (Death, Hospitalization)
  Sender: FDA-Public Use
  Company Number: 2012MA00675

PATIENT
  Age: 37 Year
  Sex: Male
  Weight: 73.4827 kg

DRUGS (3)
  1. BENZOYLECGONINE [Concomitant]
  2. PAREGORIC LIQUID USP (ALPHARMA) [Suspect]
     Indication: PAIN
  3. ALCOHOL [Concomitant]

REACTIONS (1)
  - ROAD TRAFFIC ACCIDENT [None]
